FAERS Safety Report 5077062-4 (Version None)
Quarter: 2006Q3

REPORT INFORMATION
  Report Type: 
  Country: None (occurrence: None)
  Receive Date: 20060810
  Receipt Date: 20031030
  Transmission Date: 20061208
  Serious: No
  Sender: FDA-Public Use
  Company Number: US-GLAXOSMITHKLINE-A0432713A

PATIENT
  Sex: Female
  Weight: 70.9 kg

DRUGS (1)
  1. PAXIL CR [Suspect]
     Indication: DEPRESSION
     Route: 048

REACTIONS (5)
  - DIZZINESS [None]
  - DRUG WITHDRAWAL SYNDROME [None]
  - FATIGUE [None]
  - MIGRAINE [None]
  - NAUSEA [None]
